FAERS Safety Report 8899132 (Version 1)
Quarter: 2012Q4

REPORT INFORMATION
  Report Type: 
  Country: US (occurrence: US)
  Receive Date: 20121109
  Receipt Date: 20121109
  Transmission Date: 20130627
  Serious: No
  Sender: FDA-Public Use
  Company Number: US-B.I. PHARMACEUTICALS,INC./RIDGEFIELD-2012-BP-27319BP

PATIENT
  Age: 55 Year
  Sex: Female
  Weight: 95 kg

DRUGS (5)
  1. SPIRIVA [Suspect]
     Indication: CHRONIC OBSTRUCTIVE PULMONARY DISEASE
     Dosage: 18 mcg
     Route: 055
     Dates: start: 20121106
  2. VENTOLIN [Concomitant]
     Indication: DYSPNOEA
     Dosage: 6 puf
     Route: 055
     Dates: start: 2011
  3. ZOLOFT [Concomitant]
     Indication: DEPRESSION
     Dosage: 100 mg
     Route: 048
     Dates: start: 2011
  4. METOPROLOL [Concomitant]
     Indication: HYPERTENSION
     Dosage: 7.5 mg
     Route: 048
     Dates: start: 2010
  5. LEVOTHYROXINE [Concomitant]
     Indication: HYPOTHYROIDISM
     Dosage: 175 mcg
     Route: 048
     Dates: start: 1992

REACTIONS (2)
  - Dysgeusia [Recovered/Resolved]
  - Cough [Recovered/Resolved]
